FAERS Safety Report 19704284 (Version 1)
Quarter: 2021Q3

REPORT INFORMATION
  Report Type: Spontaneous
  Country: PT (occurrence: PT)
  Receive Date: 20210816
  Receipt Date: 20210816
  Transmission Date: 20211014
  Serious: Yes (Hospitalization)
  Sender: FDA-Public Use
  Company Number: PT-MACLEODS PHARMACEUTICALS US LTD-MAC2021032326

PATIENT

DRUGS (1)
  1. OLMESARTAN 40MG [Suspect]
     Active Substance: OLMESARTAN
     Indication: HYPERTENSION
     Dosage: 40 MILLIGRAM, QD
     Route: 065

REACTIONS (5)
  - Dehydration [Recovered/Resolved]
  - Tachycardia [Recovered/Resolved]
  - Hypotension [Recovered/Resolved]
  - Sprue-like enteropathy [Recovered/Resolved]
  - Normocytic anaemia [Recovered/Resolved]
